FAERS Safety Report 13340517 (Version 1)
Quarter: 2017Q1

REPORT INFORMATION
  Report Type: Report from Study
  Country: CO (occurrence: CO)
  Receive Date: 20170316
  Receipt Date: 20170316
  Transmission Date: 20170428
  Serious: Yes (Hospitalization, Other)
  Sender: FDA-Public Use
  Company Number: CO-AMGEN-COLSL2017026980

PATIENT
  Age: 36 Year
  Sex: Female

DRUGS (1)
  1. NPLATE [Suspect]
     Active Substance: ROMIPLOSTIM
     Indication: IMMUNE THROMBOCYTOPENIC PURPURA
     Dosage: 250 MUG, QWK
     Route: 058
     Dates: start: 20160907

REACTIONS (7)
  - Bladder injury [Not Recovered/Not Resolved]
  - Feeling hot [Unknown]
  - Vaginal haemorrhage [Unknown]
  - Thrombocytosis [Recovering/Resolving]
  - Thrombocytopenia [Not Recovered/Not Resolved]
  - Abdominal pain [Unknown]
  - Vaginal prolapse [Not Recovered/Not Resolved]

NARRATIVE: CASE EVENT DATE: 20170212
